FAERS Safety Report 5833502-1 (Version None)
Quarter: 2008Q3

REPORT INFORMATION
  Report Type: 
  Country: None (occurrence: None)
  Receive Date: 20080731
  Receipt Date: 20080718
  Transmission Date: 20090109
  Serious: Yes (Hospitalization)
  Sender: FDA-Public Use
  Company Number: A-US2007-14713

PATIENT
  Age: 70 Year
  Sex: Female
  Weight: 39.5 kg

DRUGS (2)
  1. TRACLEER [Suspect]
     Indication: PULMONARY HYPERTENSION
     Dosage: ORAL
     Route: 048
     Dates: start: 20070301
  2. MARINOL [Concomitant]

REACTIONS (2)
  - LUNG DISORDER [None]
  - ORGANISING PNEUMONIA [None]
